FAERS Safety Report 13028679 (Version 2)
Quarter: 2017Q1

REPORT INFORMATION
  Report Type: Spontaneous
  Country: US (occurrence: US)
  Receive Date: 20161214
  Receipt Date: 20170314
  Transmission Date: 20170428
  Serious: Yes (Hospitalization, Other)
  Sender: FDA-Public Use
  Company Number: US-LUNDBECK-DKLU2023842

PATIENT
  Age: 21 Year
  Sex: Male

DRUGS (9)
  1. ONFI [Suspect]
     Active Substance: CLOBAZAM
     Route: 048
     Dates: start: 201404
  2. DEPAKOTE [Concomitant]
     Active Substance: DIVALPROEX SODIUM
     Indication: PRODUCT USED FOR UNKNOWN INDICATION
     Route: 065
  3. ONFI [Suspect]
     Active Substance: CLOBAZAM
     Route: 065
     Dates: start: 201612
  4. INTUNA [Concomitant]
     Indication: PRODUCT USED FOR UNKNOWN INDICATION
     Route: 065
  5. SABRIL [Suspect]
     Active Substance: VIGABATRIN
     Indication: EPILEPSY
     Route: 048
  6. ONFI [Suspect]
     Active Substance: CLOBAZAM
     Indication: EPILEPSY
     Route: 048
     Dates: start: 201404
  7. ONFI [Suspect]
     Active Substance: CLOBAZAM
     Route: 048
  8. KEPPRA [Concomitant]
     Active Substance: LEVETIRACETAM
     Indication: PRODUCT USED FOR UNKNOWN INDICATION
     Route: 065
  9. ONFI [Suspect]
     Active Substance: CLOBAZAM
     Route: 048

REACTIONS (5)
  - Musculoskeletal pain [Unknown]
  - Pneumonia [Unknown]
  - Influenza [Unknown]
  - Seizure [Unknown]
  - Weight increased [Unknown]

NARRATIVE: CASE EVENT DATE: 20170303
